FAERS Safety Report 14493104 (Version 2)
Quarter: 2018Q3

REPORT INFORMATION
  Report Type: Spontaneous
  Country: PL (occurrence: PL)
  Receive Date: 20180206
  Receipt Date: 20180815
  Transmission Date: 20181010
  Serious: Yes (Hospitalization)
  Sender: FDA-Public Use
  Company Number: PHHY2014PL185004

PATIENT
  Sex: Female
  Weight: 70 kg

DRUGS (8)
  1. DOCETAXEL. [Suspect]
     Active Substance: DOCETAXEL
     Indication: BREAST CANCER
     Dosage: 138 MG, Q3W (DATE OF LAST DOSE PRIOR TO SAE: 04 APR 2013)
     Route: 042
     Dates: start: 20130110
  2. PERTUZUMAB. [Suspect]
     Active Substance: PERTUZUMAB
     Indication: HER-2 POSITIVE BREAST CANCER
     Dosage: 1 OT, Q3W LAST DOSE PRIOR TO SAE: 20 DEC 2013 (MAINTAINANCE DOSE)
     Route: 042
  3. METOPROLOL TARTRATE. [Concomitant]
     Active Substance: METOPROLOL TARTRATE
     Indication: PRODUCT USED FOR UNKNOWN INDICATION
     Dosage: 25 MG, UNK
     Route: 065
     Dates: start: 2001, end: 20140210
  4. PERTUZUMAB. [Suspect]
     Active Substance: PERTUZUMAB
     Dosage: LAST DOSE PRIOR TO SAE: 20/DEC/2013MAINTAINANCE DOSE
     Route: 042
  5. HERCEPTIN [Suspect]
     Active Substance: TRASTUZUMAB
     Indication: BREAST CANCER
     Dosage: 8 MG/KG, ONCE/SINGLE (LAODING DOSEAS PER PROTOCOL)
     Route: 042
     Dates: start: 20130110
  6. PERTUZUMAB. [Suspect]
     Active Substance: PERTUZUMAB
     Indication: BREAST CANCER
     Dosage: 1 TOTAL, LOADING DOSE AS PER PROTOCOL
     Route: 042
     Dates: start: 20130110
  7. HERCEPTIN [Suspect]
     Active Substance: TRASTUZUMAB
     Dosage: 444 MG, UNK (LAST DOSE PRIOR TO SAE)
     Route: 042
     Dates: start: 20131220
  8. HERCEPTIN [Suspect]
     Active Substance: TRASTUZUMAB
     Indication: HER-2 POSITIVE BREAST CANCER
     Dosage: 6 MG/KG, Q3W
     Route: 042

REACTIONS (3)
  - Cardiac failure [Recovered/Resolved]
  - Ejection fraction decreased [Recovered/Resolved]
  - Ejection fraction decreased [Not Recovered/Not Resolved]

NARRATIVE: CASE EVENT DATE: 20140201
